FAERS Safety Report 4494251-8 (Version None)
Quarter: 2004Q4

REPORT INFORMATION
  Report Type: 
  Country: None (occurrence: None)
  Receive Date: 20041105
  Receipt Date: 20040921
  Transmission Date: 20050328
  Serious: Yes (Other)
  Sender: FDA-Public Use
  Company Number: PHNU2004DE03284

PATIENT
  Age: 20 Year
  Sex: Male
  Weight: 94 kg

DRUGS (2)
  1. CLOZAPINE [Suspect]
     Indication: SCHIZOPHRENIA
     Dosage: 75 MG/DAY
     Route: 048
     Dates: start: 20030901
  2. CLOZAPINE [Suspect]
     Dosage: { 75 MG/DAY
     Route: 048

REACTIONS (2)
  - CATARACT [None]
  - VISUAL DISTURBANCE [None]
